FAERS Safety Report 4435482-2 (Version None)
Quarter: 2004Q3

REPORT INFORMATION
  Report Type: 
  Country: None (occurrence: None)
  Receive Date: 20040826
  Receipt Date: 20040816
  Transmission Date: 20050211
  Serious: No
  Sender: FDA-Public Use
  Company Number: 04H-008-0270908-00

PATIENT
  Sex: Male

DRUGS (1)
  1. DROPERIDOL [Suspect]
     Indication: PROPHYLAXIS
     Dosage: 1 MG,

REACTIONS (3)
  - AGITATION [None]
  - HAEMARTHROSIS [None]
  - RESTLESSNESS [None]
